FAERS Safety Report 24983735 (Version 1)
Quarter: 2025Q1

REPORT INFORMATION
  Report Type: Spontaneous
  Country: GB (occurrence: GB)
  Receive Date: 20250219
  Receipt Date: 20250219
  Transmission Date: 20250409
  Serious: Yes (Other)
  Sender: RANBAXY
  Company Number: GB-SUN PHARMACEUTICAL INDUSTRIES LTD-2025RR-495066

PATIENT
  Age: 36 Year
  Sex: Female
  Weight: 120 kg

DRUGS (1)
  1. SERTRALINE [Suspect]
     Active Substance: SERTRALINE HYDROCHLORIDE
     Indication: Adverse drug reaction
     Route: 065
     Dates: start: 20241112, end: 20250114

REACTIONS (1)
  - Urinary incontinence [Recovered/Resolved]

NARRATIVE: CASE EVENT DATE: 20241205
